FAERS Safety Report 6517797-7 (Version None)
Quarter: 2009Q4

REPORT INFORMATION
  Report Type: 
  Country: None (occurrence: None)
  Receive Date: 20091224
  Receipt Date: 20091221
  Transmission Date: 20100525
  Serious: Yes (Hospitalization)
  Sender: FDA-Public Use
  Company Number: US-ELI_LILLY_AND_COMPANY-US200912004691

PATIENT
  Sex: Male

DRUGS (13)
  1. BYETTA [Suspect]
     Indication: TYPE 2 DIABETES MELLITUS
     Dosage: 5 UG, 2/D
     Route: 058
     Dates: start: 20070101, end: 20070101
  2. BYETTA [Suspect]
     Dosage: 10 UG, 2/D
     Route: 058
     Dates: start: 20070101
  3. BYETTA [Suspect]
     Dosage: 10 UG, 2/D
     Route: 058
     Dates: start: 20070101
  4. BYETTA [Suspect]
     Dosage: 10 UG, 2/D
     Route: 058
     Dates: start: 20070101
  5. BYETTA [Suspect]
     Dosage: 10 UG, 2/D
     Route: 058
     Dates: start: 20070101
  6. BYETTA [Suspect]
     Dosage: 10 UG, 2/D
     Route: 058
     Dates: start: 20070101
  7. NEURONTIN [Concomitant]
     Dosage: 300 MG, DAILY (1/D)
     Route: 048
  8. CYMBALTA [Concomitant]
     Indication: DEPRESSION
     Dosage: 30 MG, DAILY (1/D)
     Route: 048
  9. METFORMIN HCL [Concomitant]
     Indication: TYPE 2 DIABETES MELLITUS
     Dosage: 500 MG, 3/D
     Route: 048
  10. GLYBURIDE [Concomitant]
     Dosage: 5 MG, 3/D
     Route: 048
  11. AMBIEN [Concomitant]
     Dosage: 5 MG, UNK
     Route: 048
  12. BUSPAR [Concomitant]
     Indication: ANXIETY
     Dosage: 1.5 MG, EACH MORNING
     Route: 048
  13. BUSPAR [Concomitant]
     Dosage: 3 MG, EACH EVENING
     Route: 048

REACTIONS (5)
  - FALL [None]
  - GAIT DISTURBANCE [None]
  - PARKINSON'S DISEASE [None]
  - RESTLESS LEGS SYNDROME [None]
  - URINARY TRACT INFECTION [None]
